FAERS Safety Report 7725081-9 (Version None)
Quarter: 2011Q3

REPORT INFORMATION
  Report Type: 
  Country: None (occurrence: None)
  Receive Date: 20110901
  Receipt Date: 20110822
  Transmission Date: 20111222
  Serious: Yes (Life-Threatening, Hospitalization)
  Sender: FDA-Public Use
  Company Number: US-PFIZER INC-2011194707

PATIENT
  Sex: Male

DRUGS (5)
  1. ACETAMINOPHEN [Concomitant]
     Indication: HEADACHE
     Dosage: UNK
     Dates: start: 20110615, end: 20110615
  2. DEXAMETHASONE [Concomitant]
     Dosage: UNK
     Dates: start: 20110616
  3. IRINOTECAN HCL [Suspect]
     Indication: ASTROCYTOMA
  4. CETUXIMAB [Suspect]
     Indication: ASTROCYTOMA
     Dosage: UNK
     Dates: start: 20110407, end: 20110518
  5. MANNITOL [Concomitant]
     Dosage: UNK
     Dates: start: 20110616, end: 20110616

REACTIONS (3)
  - CENTRAL NERVOUS SYSTEM NECROSIS [None]
  - DIARRHOEA [None]
  - HYPOKALAEMIA [None]
